FAERS Safety Report 18326093 (Version 3)
Quarter: 2020Q4

REPORT INFORMATION
  Report Type: Spontaneous
  Country: JP (occurrence: JP)
  Receive Date: 20200929
  Receipt Date: 20201022
  Transmission Date: 20210113
  Serious: Yes (Hospitalization)
  Sender: FDA-Public Use
  Company Number: JP-REGENERON PHARMACEUTICALS, INC.-2020-77400

PATIENT

DRUGS (4)
  1. EYLEA [Suspect]
     Active Substance: AFLIBERCEPT
     Indication: NEOVASCULAR AGE-RELATED MACULAR DEGENERATION
     Dosage: 0.05 ML, ONCE (RIGHT EYE, TOTAL OF 25 DOSES PRIOR TO THE EVENT)
     Route: 031
  2. EYLEA [Suspect]
     Active Substance: AFLIBERCEPT
     Indication: POLYPOIDAL CHOROIDAL VASCULOPATHY
  3. POVIDONE-IODINE. [Concomitant]
     Active Substance: POVIDONE-IODINE
     Indication: EYE IRRIGATION
  4. POVIDONE-IODINE. [Concomitant]
     Active Substance: POVIDONE-IODINE
     Indication: INFECTION PROPHYLAXIS

REACTIONS (1)
  - Sympathetic ophthalmia [Unknown]
